FAERS Safety Report 9168942 (Version 3)
Quarter: 2016Q2

REPORT INFORMATION
  Report Type: Report from Study
  Country: US (occurrence: US)
  Receive Date: 20130318
  Receipt Date: 20160520
  Transmission Date: 20160815
  Serious: Yes (Hospitalization)
  Sender: FDA-Public Use
  Company Number: US-009507513-1303USA008027

PATIENT
  Age: 54 Year
  Sex: Female

DRUGS (4)
  1. REBETOL [Suspect]
     Active Substance: RIBAVIRIN
     Dosage: UNK, BID (2 IN 1 DAY)
     Route: 065
  2. VICTRELIS [Suspect]
     Active Substance: BOCEPREVIR
     Indication: PRODUCT USED FOR UNKNOWN INDICATION
     Route: 065
  3. PEGASYS [Suspect]
     Active Substance: PEGINTERFERON ALFA-2A
     Indication: PRODUCT USED FOR UNKNOWN INDICATION
     Route: 065
  4. REBETOL [Suspect]
     Active Substance: RIBAVIRIN
     Indication: PRODUCT USED FOR UNKNOWN INDICATION
     Dosage: 6 IN 1 DAY
     Route: 065

REACTIONS (14)
  - Peripheral swelling [Unknown]
  - Nausea [Unknown]
  - Hypertension [Unknown]
  - Anaemia [Unknown]
  - White blood cell count decreased [Unknown]
  - Immunodeficiency [Unknown]
  - Swelling face [Unknown]
  - Headache [Unknown]
  - Weight increased [Unknown]
  - Malaise [Unknown]
  - Blood potassium decreased [Unknown]
  - Vertigo [Unknown]
  - Abdominal pain upper [Unknown]
  - Candida infection [Unknown]

NARRATIVE: CASE EVENT DATE: 20130124
